FAERS Safety Report 12786103 (Version 1)
Quarter: 2016Q3

REPORT INFORMATION
  Report Type: Spontaneous
  Country: DK (occurrence: DK)
  Receive Date: 20160927
  Receipt Date: 20160927
  Transmission Date: 20161109
  Serious: Yes (Other)
  Sender: FDA-Public Use
  Company Number: DK-PFIZER INC-2016443509

PATIENT
  Age: 44 Year
  Sex: Female

DRUGS (8)
  1. LAMICTAL [Concomitant]
     Active Substance: LAMOTRIGINE
     Indication: MENTAL DISORDER
     Dosage: 25 MG, DAILY
     Dates: start: 2004, end: 201309
  2. VENLAFAXINE HCL [Suspect]
     Active Substance: VENLAFAXINE HYDROCHLORIDE
     Dosage: 225 MG, DAILY
     Dates: start: 20091119
  3. MIRTAZAPINE. [Concomitant]
     Active Substance: MIRTAZAPINE
     Dosage: 30 MG, UNK
     Dates: start: 20111205
  4. VENLAFAXINE HCL [Suspect]
     Active Substance: VENLAFAXINE HYDROCHLORIDE
     Dosage: 37.5 MG, UNK
     Dates: start: 20091021
  5. VENLAFAXINE HCL [Suspect]
     Active Substance: VENLAFAXINE HYDROCHLORIDE
     Dosage: 3 DF, DAILY
  6. VENLAFAXINE HCL [Suspect]
     Active Substance: VENLAFAXINE HYDROCHLORIDE
     Dosage: DOSE REDUCED
     Dates: start: 20110418
  7. VENLAFAXINE HCL [Suspect]
     Active Substance: VENLAFAXINE HYDROCHLORIDE
     Indication: DEPRESSION
     Dosage: DOSERING VARIERENDE
     Route: 048
     Dates: start: 200405, end: 20140504
  8. MIRTAZAPINE. [Concomitant]
     Active Substance: MIRTAZAPINE
     Indication: DEPRESSION
     Dosage: AT NIGHT
     Route: 048
     Dates: start: 20110418, end: 201405

REACTIONS (24)
  - Tooth fracture [Recovered/Resolved]
  - Paraesthesia [Unknown]
  - Vision blurred [Unknown]
  - Psychotic disorder [Unknown]
  - Fall [Unknown]
  - Polyneuropathy [Unknown]
  - Pain [Unknown]
  - Conjunctivitis [Unknown]
  - Hypersensitivity [Unknown]
  - Visual acuity reduced [Unknown]
  - Ankle fracture [Unknown]
  - Blood folate decreased [Unknown]
  - Nervous system disorder [Unknown]
  - Dry mouth [Recovered/Resolved]
  - Vitamin B12 deficiency [Unknown]
  - Tremor [Recovered/Resolved]
  - Thyroid disorder [Unknown]
  - Restless legs syndrome [Recovered/Resolved]
  - Hypoaesthesia [Unknown]
  - Dental caries [Unknown]
  - Muscular weakness [Recovered/Resolved]
  - Salivary hypersecretion [Unknown]
  - Balance disorder [Unknown]
  - Lacrimation increased [Unknown]

NARRATIVE: CASE EVENT DATE: 2006
